FAERS Safety Report 9026111 (Version 1)
Quarter: 2013Q1

REPORT INFORMATION
  Report Type: Spontaneous
  Country: US (occurrence: US)
  Receive Date: 20130122
  Receipt Date: 20130122
  Transmission Date: 20140127
  Serious: No
  Sender: FDA-Public Use
  Company Number: US-MYLANLABS-2012S1019260

PATIENT
  Age: 71 Year
  Sex: Male
  Weight: 83.01 kg

DRUGS (6)
  1. BISOPROLOL FUMARATE [Suspect]
     Indication: ATRIAL FIBRILLATION
     Dosage: 1 1/2 TABS PO BID
     Route: 048
     Dates: start: 20120905
  2. FLAGYL [Concomitant]
  3. DOXYCYCLINE [Concomitant]
  4. PREDNISONE [Concomitant]
  5. PROTONIX [Concomitant]
  6. RANITIDINE [Concomitant]

REACTIONS (3)
  - Drug ineffective for unapproved indication [Not Recovered/Not Resolved]
  - Tachycardia [Recovered/Resolved]
  - Cardiac flutter [Not Recovered/Not Resolved]
